FAERS Safety Report 14188058 (Version 1)
Quarter: 2017Q4

REPORT INFORMATION
  Report Type: Spontaneous
  Country: US (occurrence: None)
  Receive Date: 20171113
  Receipt Date: 20171113
  Transmission Date: 20180321
  Serious: Yes (Hospitalization)
  Sender: FDA-Public Use
  Company Number: None

PATIENT
  Age: 50 Year
  Sex: Female

DRUGS (10)
  1. VANCOMYCIN [Concomitant]
     Active Substance: VANCOMYCIN
  2. HYDROXYUREA. [Concomitant]
     Active Substance: HYDROXYUREA
  3. EXJADE [Suspect]
     Active Substance: DEFERASIROX
     Indication: SICKLE CELL ANAEMIA
     Route: 048
     Dates: start: 20170302
  4. LEVOTHYROXINE. [Concomitant]
     Active Substance: LEVOTHYROXINE
  5. XARELTO [Concomitant]
     Active Substance: RIVAROXABAN
  6. RANITIDINE. [Concomitant]
     Active Substance: RANITIDINE
  7. FOLIC ACID. [Concomitant]
     Active Substance: FOLIC ACID
  8. MULTIVITAMIN [Concomitant]
     Active Substance: VITAMINS
  9. METRONIDAZOL [Concomitant]
     Active Substance: METRONIDAZOLE
  10. HYDROCO/APAP [Concomitant]
     Active Substance: ACETAMINOPHEN\HYDROCODONE

REACTIONS (1)
  - Hospitalisation [None]
